FAERS Safety Report 5343824-9 (Version None)
Quarter: 2007Q2

REPORT INFORMATION
  Report Type: 
  Country: None (occurrence: None)
  Receive Date: 20070604
  Receipt Date: 20070522
  Transmission Date: 20071010
  Serious: Yes (Death, Life-Threatening, Hospitalization)
  Sender: FDA-Public Use
  Company Number: FR-AMGEN-US203171

PATIENT
  Age: 80 Year
  Sex: Female

DRUGS (4)
  1. ENBREL [Suspect]
     Indication: RHEUMATOID ARTHRITIS
     Route: 058
     Dates: start: 20050915, end: 20060115
  2. HUMIRA [Suspect]
     Indication: RHEUMATOID ARTHRITIS
     Route: 058
     Dates: start: 20050715, end: 20050915
  3. AZATHIOPRINE SODIUM [Suspect]
     Indication: RHEUMATOID ARTHRITIS
     Route: 048
     Dates: start: 20050415
  4. CORTANCYL [Suspect]
     Indication: RHEUMATOID ARTHRITIS
     Dosage: 7 MG TOTAL DAILY
     Route: 048
     Dates: start: 19940101

REACTIONS (12)
  - ACUTE PRERENAL FAILURE [None]
  - ACUTE RESPIRATORY FAILURE [None]
  - ATRIAL FIBRILLATION [None]
  - BRONCHITIS BACTERIAL [None]
  - CARDIO-RESPIRATORY ARREST [None]
  - GASTROENTERITIS [None]
  - HYPOXIA [None]
  - LUNG INFECTION PSEUDOMONAL [None]
  - RESPIRATORY DISTRESS [None]
  - SINUS DISORDER [None]
  - STAPHYLOCOCCAL SEPSIS [None]
  - TACHYCARDIA [None]
